FAERS Safety Report 22395290 (Version 1)
Quarter: 2023Q2

REPORT INFORMATION
  Report Type: Spontaneous
  Country: PL (occurrence: PL)
  Receive Date: 20230601
  Receipt Date: 20230601
  Transmission Date: 20230721
  Serious: Yes (Hospitalization)
  Sender: FDA-Public Use
  Company Number: PL-BIOGEN-2023BI01208069

PATIENT
  Age: 22 Year

DRUGS (1)
  1. TECFIDERA [Suspect]
     Active Substance: DIMETHYL FUMARATE
     Indication: Product used for unknown indication
     Route: 050
     Dates: start: 2019

REACTIONS (1)
  - Juvenile idiopathic arthritis [Unknown]

NARRATIVE: CASE EVENT DATE: 20210129
